FAERS Safety Report 5753427-X (Version None)
Quarter: 2008Q2

REPORT INFORMATION
  Report Type: 
  Country: None (occurrence: None)
  Receive Date: 20080530
  Receipt Date: 20080519
  Transmission Date: 20081010
  Serious: Yes (Death)
  Sender: FDA-Public Use
  Company Number: JP-NOVOPROD-274854

PATIENT
  Age: 67 Year
  Sex: Male
  Weight: 57 kg

DRUGS (28)
  1. NOVOSEVEN [Suspect]
     Indication: ACQUIRED HAEMOPHILIA
     Dosage: 2.4 - 9.6 MG
     Route: 042
     Dates: start: 20071226, end: 20080426
  2. NOVOLIN R [Concomitant]
     Indication: DIABETES MELLITUS
     Dosage: 4 U, QD
     Route: 058
     Dates: start: 20080101, end: 20080426
  3. PREDONINE                          /00016204/ [Concomitant]
     Indication: DRUG USE FOR UNKNOWN INDICATION
     Dosage: 35 - 60 MG
     Route: 048
     Dates: start: 20071225, end: 20080426
  4. PREDONINE                          /00016204/ [Concomitant]
     Dosage: 35 - 50 MG
     Route: 042
     Dates: start: 20071230, end: 20080429
  5. THYRADIN S [Concomitant]
     Indication: HYPOTHYROIDISM
     Dosage: 75 MG, UNK
     Route: 048
     Dates: start: 20071225, end: 20080426
  6. ONEALFA [Concomitant]
     Indication: OSTEOPOROSIS PROPHYLAXIS
     Dosage: .25 MG, UNK
     Route: 048
     Dates: start: 20071225, end: 20080426
  7. DIOVAN                             /01319601/ [Concomitant]
     Indication: DRUG USE FOR UNKNOWN INDICATION
     Dosage: 40 MG, QD
     Route: 048
     Dates: start: 20071225, end: 20080426
  8. LASIX [Concomitant]
     Indication: RENAL FAILURE
     Dosage: 160 MG, QD
     Route: 048
     Dates: start: 20071225, end: 20080426
  9. TAKEPRON [Concomitant]
     Indication: PROPHYLAXIS AGAINST GASTROINTESTINAL ULCER
     Dosage: 30 MG, QD
     Route: 048
     Dates: start: 20071225, end: 20080426
  10. TAKEPRON [Concomitant]
     Dosage: 15 MG, QD
     Route: 042
     Dates: start: 20080427, end: 20080429
  11. FLUITRAN [Concomitant]
     Indication: RENAL FAILURE
     Dosage: 4 MG, QD
     Route: 048
     Dates: start: 20071225, end: 20080426
  12. AMLODIN [Concomitant]
     Indication: HYPERTENSION
     Dosage: 5 MG, QD
     Route: 048
     Dates: start: 20071225, end: 20080426
  13. PENTAGIN                           /00052103/ [Concomitant]
     Indication: PAIN
     Dosage: 100 MG, QD
     Route: 048
     Dates: start: 20071225, end: 20080426
  14. DIFLUCAN [Concomitant]
     Indication: PROPHYLAXIS
     Dosage: 100 MG, QD
     Route: 048
     Dates: start: 20071225, end: 20080426
  15. TRANSAMIN [Concomitant]
     Indication: HAEMORRHAGE
     Dosage: 250 - 1500 MG
     Route: 048
     Dates: start: 20071227, end: 20080426
  16. FIBROGAMMIN P [Concomitant]
     Indication: FACTOR VII DEFICIENCY
     Dosage: 12 ML, QD
     Route: 042
     Dates: start: 20071227, end: 20071227
  17. BAKTAR [Concomitant]
     Indication: PNEUMONIA
     Dosage: .5 G, QD
     Route: 048
     Dates: start: 20071228, end: 20080426
  18. MYSLEE [Concomitant]
     Indication: INSOMNIA
     Dosage: 5 MG, QD
     Route: 048
     Dates: start: 20071228, end: 20080426
  19. PRIDOL [Concomitant]
     Indication: DRUG USE FOR UNKNOWN INDICATION
     Dosage: 250 - 500 MG
     Route: 042
     Dates: start: 20080101, end: 20080320
  20. ACYCLOVIR [Concomitant]
     Indication: HERPES ZOSTER
     Dosage: 125 MG, QD
     Route: 042
     Dates: start: 20080113, end: 20080415
  21. HARNAL [Concomitant]
     Indication: DYSURIA
     Dosage: .2 MG, QD
     Route: 048
     Dates: start: 20080108, end: 20080227
  22. BESACOLIN [Concomitant]
     Indication: DYSURIA
     Dosage: 40 MG, QD
     Route: 048
     Dates: start: 20080108, end: 20080227
  23. EVIPROSTAT                         /01150001/ [Concomitant]
     Indication: DYSURIA
     Dosage: 4 TAB, QD
     Route: 048
     Dates: start: 20080108, end: 20080426
  24. CLARITHROMYCIN [Concomitant]
     Indication: UPPER RESPIRATORY TRACT INFECTION
     Dosage: 200 MG, QD
     Route: 048
     Dates: start: 20080130, end: 20080207
  25. TIENAM [Concomitant]
     Indication: PNEUMONIA
     Dosage: .5 G, QD
     Route: 042
     Dates: start: 20080204, end: 20080414
  26. RISPERDAL [Concomitant]
     Indication: RESTLESSNESS
     Dosage: .5 ML, QD
     Route: 048
     Dates: start: 20080215, end: 20080426
  27. ITRACONAZOLE [Concomitant]
     Indication: ONYCHOMYCOSIS
     Dosage: 300 MG, QD
     Route: 048
     Dates: start: 20080229, end: 20080306
  28. ZOVIRAX                            /00587301/ [Concomitant]
     Indication: HERPES ZOSTER
     Dosage: 400 MG, QD
     Route: 048
     Dates: start: 20080301, end: 20080314

REACTIONS (8)
  - BLOOD LACTATE DEHYDROGENASE INCREASED [None]
  - FIBRIN D DIMER INCREASED [None]
  - HEPATIC FUNCTION ABNORMAL [None]
  - HYPOPROTEINAEMIA [None]
  - PLATELET COUNT DECREASED [None]
  - RENAL FAILURE [None]
  - SUBCUTANEOUS HAEMATOMA [None]
  - WHITE BLOOD CELL COUNT INCREASED [None]
